FAERS Safety Report 23219659 (Version 3)
Quarter: 2024Q1

REPORT INFORMATION
  Report Type: Spontaneous
  Country: JP (occurrence: JP)
  Receive Date: 20231122
  Receipt Date: 20240320
  Transmission Date: 20240409
  Serious: Yes (Life-Threatening, Hospitalization, Other)
  Sender: FDA-Public Use
  Company Number: JP-MSD-2308JPN004510J

PATIENT
  Age: 72 Year
  Sex: Female
  Weight: 46.9 kg

DRUGS (12)
  1. KEYTRUDA [Suspect]
     Active Substance: PEMBROLIZUMAB
     Indication: Uterine cancer
     Dosage: 200 MILLIGRAM
     Route: 041
     Dates: start: 20230727, end: 20230727
  2. LENVATINIB MESYLATE [Suspect]
     Active Substance: LENVATINIB MESYLATE
     Indication: Uterine cancer
     Dosage: 20 MILLIGRAM, QD
     Route: 048
     Dates: start: 20230727, end: 20230807
  3. FOLIC ACID [Concomitant]
     Active Substance: FOLIC ACID
     Dosage: 15 MILLIGRAM, QD
     Route: 065
     Dates: end: 20230814
  4. OLMESARTAN MEDOXOMIL [Concomitant]
     Active Substance: OLMESARTAN MEDOXOMIL
     Dosage: 40 MILLIGRAM, QD
     Route: 048
     Dates: end: 20230813
  5. FUROSEMIDE [Concomitant]
     Active Substance: FUROSEMIDE
     Dosage: 80 MILLIGRAM, QD
     Route: 048
     Dates: end: 20230814
  6. FEXOFENADINE HYDROCHLORIDE [Concomitant]
     Active Substance: FEXOFENADINE HYDROCHLORIDE
     Dosage: 120 MILLIGRAM, QD
     Route: 048
     Dates: end: 20230814
  7. LANTHANUM CARBONATE [Concomitant]
     Active Substance: LANTHANUM CARBONATE
     Dosage: 1500 MILLIGRAM, QD
     Route: 048
     Dates: end: 20230813
  8. CELECOXIB [Concomitant]
     Active Substance: CELECOXIB
     Dosage: 100 MILLIGRAM, QD
     Route: 048
     Dates: end: 20230814
  9. AMLODIPINE BESYLATE [Concomitant]
     Active Substance: AMLODIPINE BESYLATE
     Dosage: 10 MILLIGRAM, QD
     Route: 048
     Dates: end: 20230814
  10. METHYLCOBALAMIN [Concomitant]
     Active Substance: METHYLCOBALAMIN
     Dosage: 1500 MICROGRAM, QD
     Route: 048
     Dates: end: 20230813
  11. BIO-THREE [Concomitant]
     Active Substance: HERBALS
     Dosage: 3 UNK
     Route: 048
     Dates: end: 20230814
  12. SENNOSIDES A AND B [Concomitant]
     Active Substance: SENNOSIDES A AND B
     Dosage: 24 MILLIGRAM, QD
     Route: 048

REACTIONS (6)
  - Encephalitis [Not Recovered/Not Resolved]
  - Paraneoplastic neurological syndrome [Unknown]
  - Encephalitis autoimmune [Unknown]
  - Encephalitis [Unknown]
  - Meningitis [Unknown]
  - Hypertension [Unknown]

NARRATIVE: CASE EVENT DATE: 20230101
